FAERS Safety Report 12346988 (Version 1)
Quarter: 2016Q2

REPORT INFORMATION
  Report Type: Spontaneous
  Country: US (occurrence: US)
  Receive Date: 20160509
  Receipt Date: 20160509
  Transmission Date: 20160815
  Serious: No
  Sender: FDA-Public Use
  Company Number: PHHY2016US063287

PATIENT
  Age: 80 Year
  Sex: Female

DRUGS (2)
  1. VOLTAREN [Suspect]
     Active Substance: DICLOFENAC SODIUM
     Indication: MENISCUS INJURY
     Dosage: UNK
     Route: 065
     Dates: start: 20160422
  2. VOLTAREN [Suspect]
     Active Substance: DICLOFENAC SODIUM
     Indication: STRESS FRACTURE

REACTIONS (2)
  - Drug administration error [Unknown]
  - Off label use [Unknown]
